FAERS Safety Report 11590127 (Version 3)
Quarter: 2016Q1

REPORT INFORMATION
  Report Type: Spontaneous
  Country: US (occurrence: US)
  Receive Date: 20151002
  Receipt Date: 20160119
  Transmission Date: 20160525
  Serious: Yes (Hospitalization, Other)
  Sender: FDA-Public Use
  Company Number: US-PFIZER INC-2015327749

PATIENT
  Age: 63 Year
  Sex: Female

DRUGS (2)
  1. LYRICA [Suspect]
     Active Substance: PREGABALIN
     Indication: PAIN
  2. LYRICA [Suspect]
     Active Substance: PREGABALIN
     Indication: SLEEP DISORDER
     Dosage: 75 MG, UNK

REACTIONS (7)
  - Ankle fracture [Unknown]
  - Musculoskeletal stiffness [Unknown]
  - Swelling [Unknown]
  - Pain [Unknown]
  - Impaired work ability [Unknown]
  - Intentional product use issue [Unknown]
  - Foot fracture [Not Recovered/Not Resolved]
